FAERS Safety Report 5460488-4 (Version None)
Quarter: 2007Q3

REPORT INFORMATION
  Report Type: 
  Country: None (occurrence: None)
  Receive Date: 20070919
  Receipt Date: 20070716
  Transmission Date: 20080115
  Serious: Yes (Hospitalization)
  Sender: FDA-Public Use
  Company Number: US-ASTRAZENECA-2007UW16920

PATIENT
  Age: 39 Year
  Sex: Female
  Weight: 81.6 kg

DRUGS (2)
  1. SEROQUEL [Suspect]
     Indication: BIPOLAR I DISORDER
     Route: 048
  2. WELLBUTRIN [Concomitant]

REACTIONS (3)
  - AMNESIA [None]
  - DEPRESSION [None]
  - SUICIDAL IDEATION [None]
